FAERS Safety Report 14473243 (Version 1)
Quarter: 2018Q1

REPORT INFORMATION
  Report Type: Spontaneous
  Country: US (occurrence: US)
  Receive Date: 20180201
  Receipt Date: 20180201
  Transmission Date: 20180509
  Serious: Yes (Death, Life-Threatening, Hospitalization, Other)
  Sender: FDA-Public Use
  Company Number: US-AUROBINDO-AUR-APL-2018-003473

PATIENT
  Age: 25 Year
  Sex: Female

DRUGS (1)
  1. TRIMETHOPRIM+SULFAMETHOXAZOLE [Suspect]
     Active Substance: SULFAMETHOXAZOLE\TRIMETHOPRIM
     Indication: SOFT TISSUE INFECTION
     Dosage: ()
     Route: 065

REACTIONS (8)
  - Haemorrhage [Unknown]
  - Hepatic necrosis [Fatal]
  - Hepatitis acute [Unknown]
  - Acute kidney injury [Unknown]
  - Haemodynamic instability [Unknown]
  - Hepatotoxicity [Unknown]
  - Acute hepatic failure [Fatal]
  - Rash [Unknown]
